FAERS Safety Report 22332517 (Version 1)
Quarter: 2023Q2

REPORT INFORMATION
  Report Type: Spontaneous
  Country: US (occurrence: None)
  Receive Date: 20230516
  Receipt Date: 20230516
  Transmission Date: 20230722
  Serious: No
  Sender: FDA-Public Use
  Company Number: None

PATIENT
  Age: 62 Year
  Sex: Female

DRUGS (1)
  1. BOSENTAN [Suspect]
     Active Substance: BOSENTAN
     Indication: Pulmonary arterial hypertension
     Dosage: 125MG BID ORAL
     Route: 048
     Dates: start: 20190621

REACTIONS (3)
  - Upper-airway cough syndrome [None]
  - Productive cough [None]
  - Nasal congestion [None]

NARRATIVE: CASE EVENT DATE: 20230213
